FAERS Safety Report 5854381-2 (Version None)
Quarter: 2008Q3

REPORT INFORMATION
  Report Type: 
  Country: None (occurrence: None)
  Receive Date: 20080822
  Receipt Date: 20071213
  Transmission Date: 20090109
  Serious: No
  Sender: FDA-Public Use
  Company Number: US-BOEHRINGER INGELHEIM GMBH, GERMANY-2007-BP-26215BP

PATIENT
  Age: 4 Year
  Sex: Female

DRUGS (1)
  1. CATAPRES-TTS-1 [Suspect]
     Indication: MENTAL DISORDER
     Route: 045
     Dates: start: 20071209

REACTIONS (3)
  - LETHARGY [None]
  - PALLOR [None]
  - SOMNOLENCE [None]
